FAERS Safety Report 4493313-9 (Version None)
Quarter: 2004Q4

REPORT INFORMATION
  Report Type: 
  Country: None (occurrence: None)
  Receive Date: 20041102
  Receipt Date: 20041013
  Transmission Date: 20050328
  Serious: Yes (Other)
  Sender: FDA-Public Use
  Company Number: USA041080192

PATIENT
  Age: 43 Year
  Sex: Male
  Weight: 86 kg

DRUGS (1)
  1. CYMBALTA [Suspect]
     Indication: STRESS SYMPTOMS
     Dosage: 60 MG/1 DAY
     Dates: start: 20040901, end: 20041004

REACTIONS (5)
  - DYSPEPSIA [None]
  - EYE HAEMORRHAGE [None]
  - HYPERTENSION [None]
  - INSOMNIA [None]
  - NAUSEA [None]
